FAERS Safety Report 25524775 (Version 4)
Quarter: 2025Q3

REPORT INFORMATION
  Report Type: Spontaneous
  Country: US (occurrence: US)
  Receive Date: 20250707
  Receipt Date: 20250801
  Transmission Date: 20251020
  Serious: Yes (Death, Hospitalization, Other)
  Sender: BIOVITRUM
  Company Number: US-BIOVITRUM-2025-US-009206

PATIENT
  Age: 74 Year
  Sex: Female

DRUGS (10)
  1. VONJO [Suspect]
     Active Substance: PACRITINIB
     Indication: Polycythaemia vera
     Route: 048
     Dates: start: 20250611
  2. ALLOPURINOL ORAL [Concomitant]
     Indication: Product used for unknown indication
     Route: 048
  3. CARVEDILOL ORAL [Concomitant]
     Indication: Product used for unknown indication
     Route: 048
  4. GABAPENTIN [Concomitant]
     Active Substance: GABAPENTIN
     Indication: Product used for unknown indication
     Route: 048
  5. JANUVIA ORAL [Concomitant]
     Indication: Product used for unknown indication
     Route: 048
  6. JARDIANCE ORAL [Concomitant]
     Indication: Product used for unknown indication
     Route: 048
  7. LEVOTHYROXINE SODIUM ORAL [Concomitant]
     Indication: Product used for unknown indication
     Route: 048
  8. LISINOPRIL ORAL [Concomitant]
     Indication: Product used for unknown indication
     Route: 048
  9. METFORMIN HCL ORAL [Concomitant]
     Indication: Product used for unknown indication
     Route: 048
  10. SIMVASTATIN ORAL [Concomitant]
     Indication: Product used for unknown indication
     Route: 048

REACTIONS (5)
  - Diarrhoea [Not Recovered/Not Resolved]
  - Off label use [Recovered/Resolved]
  - Feeding disorder [Recovering/Resolving]
  - Lethargy [Recovering/Resolving]
  - Death [Fatal]

NARRATIVE: CASE EVENT DATE: 20250611
